FAERS Safety Report 10162139 (Version 1)
Quarter: 2014Q2

REPORT INFORMATION
  Report Type: Spontaneous
  Country: US (occurrence: US)
  Receive Date: 20140509
  Receipt Date: 20140509
  Transmission Date: 20141212
  Serious: Yes (Other)
  Sender: FDA-Public Use
  Company Number: US-JNJCP-30000217453

PATIENT
  Age: 22 Year
  Sex: Female
  Weight: 96 kg

DRUGS (2)
  1. JOHNSONS BABY POWDER WITH LAVENDER + CHAMOMILE [Suspect]
     Indication: PRODUCT USED FOR UNKNOWN INDICATION
     Dosage: A MEDIUM AMOUNT ALL OVER THE BODY, AFTER TAKING THE SHOWER
     Route: 061
     Dates: start: 201404
  2. JOHNSONS BABY PRODUCTS [Suspect]
     Indication: PRODUCT USED FOR UNKNOWN INDICATION
     Dosage: A MEDIUM AMOUNT ALL OVER THE BODY, AFTER TAKING THE SHOWER
     Route: 061

REACTIONS (2)
  - Skin cancer [Not Recovered/Not Resolved]
  - Exposure during pregnancy [Unknown]
